FAERS Safety Report 7220854-3 (Version None)
Quarter: 2011Q1

REPORT INFORMATION
  Report Type: 
  Country: None (occurrence: None)
  Receive Date: 20110112
  Receipt Date: 20110105
  Transmission Date: 20110831
  Serious: Yes (Other)
  Sender: FDA-Public Use
  Company Number: NL-AMGEN-NLDSP2011001415

PATIENT

DRUGS (1)
  1. ENBREL [Suspect]
     Indication: RHEUMATOID ARTHRITIS
     Dosage: 50 MG, WEEKLY. MYCLIC PEN
     Dates: start: 20100711

REACTIONS (3)
  - IMMUNODEFICIENCY [None]
  - INJECTION SITE PAIN [None]
  - NASOPHARYNGITIS [None]
